FAERS Safety Report 26010299 (Version 1)
Quarter: 2025Q4

REPORT INFORMATION
  Report Type: Spontaneous
  Country: US (occurrence: US)
  Receive Date: 20251107
  Receipt Date: 20251107
  Transmission Date: 20260118
  Serious: Yes (Other)
  Sender: TEVA
  Company Number: US-TEVA-VS-3388300

PATIENT
  Age: 30 Year
  Sex: Female

DRUGS (1)
  1. DROSPIRENONE\ETHINYL ESTRADIOL [Suspect]
     Active Substance: DROSPIRENONE\ETHINYL ESTRADIOL
     Indication: Product used for unknown indication
     Dosage: 3MG/0.03MG.
     Route: 048
     Dates: start: 20250706, end: 20250816

REACTIONS (3)
  - Pulmonary embolism [Unknown]
  - Cardiac failure [Unknown]
  - Near death experience [Unknown]

NARRATIVE: CASE EVENT DATE: 20250701
